FAERS Safety Report 20761244 (Version 1)
Quarter: 2022Q2

REPORT INFORMATION
  Report Type: Spontaneous
  Country: NL (occurrence: NL)
  Receive Date: 20220428
  Receipt Date: 20220428
  Transmission Date: 20220721
  Serious: Yes (Other)
  Sender: FDA-Public Use
  Company Number: None

PATIENT
  Sex: Female
  Weight: 65 kg

DRUGS (1)
  1. AMOXICILLIN [Suspect]
     Active Substance: AMOXICILLIN
     Indication: Pneumonia
     Dosage: 1000 MILLIGRAM DAILY; 2X A DAY 1 PIECE, UNIT DOSE 500MG,DURATION 6 DAYS,AMOXICILLINE CAPSULE 500MG /
     Dates: start: 20220328, end: 20220403

REACTIONS (1)
  - Toxic skin eruption [Not Recovered/Not Resolved]
